FAERS Safety Report 8869847 (Version 1)
Quarter: 2012Q4

REPORT INFORMATION
  Report Type: 
  Country: US (occurrence: US)
  Receive Date: 20121026
  Receipt Date: 20121026
  Transmission Date: 20130627
  Serious: No
  Sender: FDA-Public Use
  Company Number: US-AMGEN-USASP2012045903

PATIENT
  Age: 62 Year
  Sex: Female
  Weight: 93.88 kg

DRUGS (17)
  1. ENBREL [Suspect]
     Indication: PRODUCT USED FOR UNKNOWN INDICATION
     Dosage: 50 mg/ml, UNK
  2. GARLIC                             /01570501/ [Concomitant]
     Dosage: 1500 UNK, UNK
  3. GLUCOSAMINE + CHONDROITIN          /01430901/ [Concomitant]
     Dosage: UNK
  4. TRIAMTERENE AND HYDROCHLOROTHIAZIDE [Concomitant]
     Dosage: 37.5-25, UNK
  5. FOLIC ACID [Concomitant]
     Dosage: UNK
  6. CALCIUM +D                         /00944201/ [Concomitant]
     Dosage: UNK
  7. MULTIVITAMIN                       /00831701/ [Concomitant]
     Dosage: UNK
  8. VITAMIN C                          /00008001/ [Concomitant]
     Dosage: 500 mg, UNK
  9. FISH OIL [Concomitant]
     Dosage: UNK
  10. HYDROCODONE/APAP [Concomitant]
     Dosage: 10-300 mg, UNK
  11. CHLORDIAZEPOXIDE [Concomitant]
     Dosage: 10 mg, UNK
  12. AMITRIPTYLIN [Concomitant]
     Dosage: 10 mg, UNK
  13. FLONASE [Concomitant]
     Dosage: 0.05 %, UNK
  14. HYDROXYCHLOROQUINE [Concomitant]
     Dosage: 200 mg, UNK
  15. PREDNISONE [Concomitant]
     Dosage: 1 mg, UNK
  16. METHOTREXATE [Concomitant]
     Dosage: 2.5 mg, UNK
  17. FOSAMAX [Concomitant]
     Dosage: 10 mg, UNK

REACTIONS (1)
  - Drug ineffective [Unknown]
